FAERS Safety Report 22737067 (Version 2)
Quarter: 2023Q4

REPORT INFORMATION
  Report Type: Spontaneous
  Country: US (occurrence: US)
  Receive Date: 20230721
  Receipt Date: 20231027
  Transmission Date: 20240110
  Serious: Yes (Other)
  Sender: FDA-Public Use
  Company Number: US-BAYER-2023A099366

PATIENT
  Age: 29 Year
  Sex: Female

DRUGS (1)
  1. SKYLA [Suspect]
     Active Substance: LEVONORGESTREL
     Indication: Contraception
     Dosage: 14?G/DAY
     Route: 015
     Dates: start: 202209, end: 202303

REACTIONS (2)
  - Ectopic pregnancy [Recovered/Resolved]
  - Maternal exposure before pregnancy [None]

NARRATIVE: CASE EVENT DATE: 20230514
